FAERS Safety Report 23525864 (Version 4)
Quarter: 2024Q4

REPORT INFORMATION
  Report Type: Spontaneous
  Country: US (occurrence: US)
  Receive Date: 20240215
  Receipt Date: 20241204
  Transmission Date: 20250114
  Serious: No
  Sender: SANOFI AVENTIS
  Company Number: US-SA-SAC20240212000971

PATIENT
  Age: 52 Year
  Sex: Female

DRUGS (1)
  1. DUPIXENT [Suspect]
     Active Substance: DUPILUMAB
     Indication: Nasal polyps
     Dosage: 300 MG, QOW
     Route: 058
     Dates: start: 20210504

REACTIONS (5)
  - Nasal pruritus [Unknown]
  - Nasal discomfort [Unknown]
  - Hypersensitivity [Unknown]
  - Sneezing [Unknown]
  - Therapeutic response shortened [Unknown]
